FAERS Safety Report 7559641-5 (Version None)
Quarter: 2011Q2

REPORT INFORMATION
  Report Type: 
  Country: None (occurrence: None)
  Receive Date: 20110621
  Receipt Date: 20110617
  Transmission Date: 20111010
  Serious: No
  Sender: FDA-Public Use
  Company Number: US-ROXANE LABORATORIES, INC.-2011-RO-00651RO

PATIENT
  Age: 79 Year
  Sex: Female

DRUGS (10)
  1. BALSALAZIDE DISODIUM [Suspect]
     Indication: COLITIS ULCERATIVE
     Dosage: 4500 MG
     Route: 048
  2. METFORMIN HCL [Concomitant]
     Indication: TYPE 2 DIABETES MELLITUS
     Dosage: 2000 MG
  3. SYNTHROID [Concomitant]
     Indication: HYPOTHYROIDISM
     Dosage: 88 MCG
  4. MULTI-VITAMIN [Concomitant]
  5. CELLCEPT [Concomitant]
     Dosage: 1000 MG
  6. PREDNISONE [Concomitant]
     Dosage: 15 MG
  7. ASCORBIC ACID [Concomitant]
  8. VITAMIN B-12 [Concomitant]
  9. FOSAMAX [Concomitant]
  10. CALCIUM PLUS D [Concomitant]

REACTIONS (1)
  - MEDICATION RESIDUE [None]
